FAERS Safety Report 5712244-7 (Version None)
Quarter: 2008Q2

REPORT INFORMATION
  Report Type: 
  Country: None (occurrence: None)
  Receive Date: 20080421
  Receipt Date: 20080421
  Transmission Date: 20081010
  Serious: Yes (Hospitalization)
  Sender: FDA-Public Use
  Company Number: None

PATIENT
  Age: 55 Year
  Sex: Female
  Weight: 77.1115 kg

DRUGS (1)
  1. BONIVA [Suspect]
     Indication: OSTEOPOROSIS
     Dosage: 1 MONTHLY PO
     Route: 048
     Dates: start: 20080413, end: 20080413

REACTIONS (5)
  - ASTHENIA [None]
  - BEDRIDDEN [None]
  - BONE PAIN [None]
  - IMPAIRED WORK ABILITY [None]
  - MALAISE [None]
